FAERS Safety Report 5223112-1 (Version None)
Quarter: 2007Q1

REPORT INFORMATION
  Report Type: 
  Country: None (occurrence: None)
  Receive Date: 20070129
  Receipt Date: 20070118
  Transmission Date: 20070707
  Serious: Yes (Hospitalization)
  Sender: FDA-Public Use
  Company Number: SE-PFIZER INC-2007005406

PATIENT
  Sex: Female

DRUGS (3)
  1. CYTOTEC [Suspect]
     Indication: ABORTION
     Route: 048
     Dates: start: 20060622, end: 20060622
  2. ALVEDON [Concomitant]
     Route: 048
  3. TREO [Concomitant]
     Route: 048

REACTIONS (1)
  - NEPHRITIS INTERSTITIAL [None]
